FAERS Safety Report 10747523 (Version 1)
Quarter: 2015Q1

REPORT INFORMATION
  Report Type: Spontaneous
  Country: US (occurrence: None)
  Receive Date: 20150120
  Receipt Date: 20150120
  Transmission Date: 20150721
  Serious: No
  Sender: FDA-Public Use
  Company Number: AEGR000943

PATIENT
  Age: 58 Year
  Sex: Female
  Weight: 93.4 kg

DRUGS (13)
  1. JUXTAPID [Suspect]
     Active Substance: LOMITAPIDE MESYLATE
     Indication: TYPE IIA HYPERLIPIDAEMIA
     Route: 048
     Dates: start: 20140402, end: 20140518
  2. CALCIUM (CALCIUM CARBONATE) [Concomitant]
  3. PLAVIX (CLOPIDOGREL BISULFATE) [Concomitant]
  4. FISH OIL (COD-LIVER OIL) [Concomitant]
  5. MAGNESIUM (MAGNESIUM) [Concomitant]
     Active Substance: MAGNESIUM
  6. V ITAMIN E (TOCOPHERYL ACETATE) [Concomitant]
  7. COQ10 (UBIDECARENONE) [Concomitant]
     Active Substance: UBIDECARENONE
  8. ZETIA [Concomitant]
     Active Substance: EZETIMIBE
  9. MULTIPLE VITAMINS (ASCORBIC ACID, ERGOCALCIFEROL, FOLIC ACID, RETINOL, TOCOPHEROL, VITAMIN B NOS) [Concomitant]
  10. METOPROLOL (METOPROLOL TARTRATE) [Concomitant]
     Active Substance: METOPROLOL TARTRATE
  11. OSTEO BI-FLEX (CHONDROITIN SULFATE, GLUCOSAMINE HYDROCHLORIDE) [Concomitant]
  12. VITAMIN C (CALCIUM ASCORBATE) [Concomitant]
  13. SYNTHROID [Concomitant]
     Active Substance: LEVOTHYROXINE SODIUM

REACTIONS (1)
  - Dyspepsia [None]
